FAERS Safety Report 20309367 (Version 1)
Quarter: 2022Q1

REPORT INFORMATION
  Report Type: Spontaneous
  Country: GB (occurrence: GB)
  Receive Date: 20220107
  Receipt Date: 20220107
  Transmission Date: 20220423
  Serious: No
  Sender: FDA-Public Use
  Company Number: GB-PFIZER INC-202101160526

PATIENT
  Age: 17 Year
  Sex: Female

DRUGS (1)
  1. GENOTROPIN [Suspect]
     Active Substance: SOMATROPIN
     Indication: Turner^s syndrome
     Dosage: 1.6MG/1.8MG ALT DAYS
     Route: 058

REACTIONS (5)
  - Drug dose omission by device [Unknown]
  - Device mechanical issue [Unknown]
  - Device malfunction [Unknown]
  - Incorrect dose administered by device [Unknown]
  - Device issue [Unknown]
